FAERS Safety Report 14615075 (Version 2)
Quarter: 2018Q4

REPORT INFORMATION
  Report Type: Other
  Country: IT (occurrence: IT)
  Receive Date: 20180308
  Receipt Date: 20181214
  Transmission Date: 20190204
  Serious: Yes (Other)
  Sender: FDA-Public Use
  Company Number: IT-MERCK KGAA-2043342

PATIENT
  Age: 51 Year
  Sex: Female

DRUGS (8)
  1. LANSOPRAZOLE. [Suspect]
     Active Substance: LANSOPRAZOLE
  2. CABOZANTINIB [Suspect]
     Active Substance: CABOZANTINIB
     Route: 048
  3. LOPERAMIDE [Suspect]
     Active Substance: LOPERAMIDE
  4. EUTHYROX [Suspect]
     Active Substance: LEVOTHYROXINE SODIUM
     Indication: PRODUCT USED FOR UNKNOWN INDICATION
  5. CALCITRIOL. [Suspect]
     Active Substance: CALCITRIOL
  6. PROPRANOLOL [Suspect]
     Active Substance: PROPRANOLOL HYDROCHLORIDE
  7. DULOXETINE. [Suspect]
     Active Substance: DULOXETINE
  8. VITAMIN D3 [Suspect]
     Active Substance: CHOLECALCIFEROL

REACTIONS (1)
  - Osteonecrosis [Recovered/Resolved]
